FAERS Safety Report 5671190-8 (Version None)
Quarter: 2008Q1

REPORT INFORMATION
  Report Type: 
  Country: None (occurrence: None)
  Receive Date: 20080318
  Receipt Date: 20080310
  Transmission Date: 20080703
  Serious: Yes (Other)
  Sender: FDA-Public Use
  Company Number: JP-ELI_LILLY_AND_COMPANY-JP200802002919

PATIENT
  Sex: Female
  Weight: 47 kg

DRUGS (5)
  1. EVISTA [Suspect]
     Indication: OSTEOPOROSIS
     Dosage: 60 MG, DAILY (1/D)
     Route: 048
     Dates: start: 20071122, end: 20080124
  2. ALFAROL [Concomitant]
     Indication: PROPHYLAXIS
     Dosage: 0.5 UG, DAILY (1/D)
     Route: 048
     Dates: start: 20030107
  3. ASPARA-CA [Concomitant]
     Indication: PROPHYLAXIS
     Dosage: 200 MG, DAILY (1/D)
     Route: 048
     Dates: start: 20030107
  4. TAKEPRON [Concomitant]
     Dosage: 15 MG, DAILY (1/D)
     Route: 048
     Dates: start: 20051020
  5. BLOPRESS [Concomitant]
     Dosage: 4 MG, DAILY (1/D)
     Route: 048
     Dates: start: 20070108

REACTIONS (3)
  - ARTERIOSCLEROTIC RETINOPATHY [None]
  - DEEP VEIN THROMBOSIS [None]
  - VISION BLURRED [None]
